FAERS Safety Report 15006997 (Version 1)
Quarter: 2018Q2

REPORT INFORMATION
  Report Type: Spontaneous
  Country: US (occurrence: US)
  Receive Date: 20180613
  Receipt Date: 20180613
  Transmission Date: 20180711
  Serious: Yes (Hospitalization)
  Sender: FDA-Public Use
  Company Number: US-JNJFOC-20180611533

PATIENT
  Age: 63 Year
  Sex: Female

DRUGS (2)
  1. INVOKANA [Suspect]
     Active Substance: CANAGLIFLOZIN
     Indication: TYPE 2 DIABETES MELLITUS
     Route: 048
     Dates: start: 20131223
  2. INVOKANA [Suspect]
     Active Substance: CANAGLIFLOZIN
     Indication: TYPE 2 DIABETES MELLITUS
     Route: 048
     Dates: start: 20130927, end: 2013

REACTIONS (7)
  - Skin ulcer [Unknown]
  - Blue toe syndrome [Unknown]
  - Gangrene [Unknown]
  - Fungal infection [Unknown]
  - Osteomyelitis chronic [Unknown]
  - Toe amputation [Unknown]
  - Foot amputation [Unknown]

NARRATIVE: CASE EVENT DATE: 201312
